FAERS Safety Report 14391905 (Version 1)
Quarter: 2018Q1

REPORT INFORMATION
  Report Type: Spontaneous
  Country: CZ (occurrence: CZ)
  Receive Date: 20180116
  Receipt Date: 20180116
  Transmission Date: 20180509
  Serious: Yes (Hospitalization, Other)
  Sender: FDA-Public Use
  Company Number: CZ-PFIZER INC-2018019667

PATIENT
  Age: 74 Year
  Sex: Female

DRUGS (3)
  1. SUTENT [Suspect]
     Active Substance: SUNITINIB MALATE
     Indication: RENAL CELL CARCINOMA
     Dosage: 37.5 MG, UNK
     Route: 048
     Dates: start: 20170630, end: 20171207
  2. TRITACE [Concomitant]
     Active Substance: RAMIPRIL
     Dosage: UNK
  3. BETAHISTIN /00141802/ [Concomitant]
     Active Substance: BETAHISTINE HYDROCHLORIDE
     Dosage: UNK

REACTIONS (4)
  - Cerebellar haematoma [Unknown]
  - Hypertension [Unknown]
  - Haemorrhagic stroke [Unknown]
  - Vertigo [Unknown]

NARRATIVE: CASE EVENT DATE: 20170724
